FAERS Safety Report 8201506-X (Version None)
Quarter: 2012Q1

REPORT INFORMATION
  Report Type: 
  Country: None (occurrence: None)
  Receive Date: 20120312
  Receipt Date: 20120306
  Transmission Date: 20120608
  Serious: Yes (Hospitalization)
  Sender: FDA-Public Use
  Company Number: US-GLAXOSMITHKLINE-A0915599A

PATIENT
  Age: 46 Year
  Sex: Male
  Weight: 105.5 kg

DRUGS (2)
  1. AVANDIA [Suspect]
     Indication: DIABETES MELLITUS
     Route: 048
     Dates: start: 20050101, end: 20070701
  2. AVANDAMET [Suspect]
     Indication: DIABETES MELLITUS
     Route: 048
     Dates: start: 20010101

REACTIONS (7)
  - DYSPNOEA [None]
  - HYPERLIPIDAEMIA [None]
  - MYOCARDIAL INFARCTION [None]
  - HYPERTENSION [None]
  - STENT PLACEMENT [None]
  - CORONARY ARTERY OCCLUSION [None]
  - CORONARY ARTERY DISEASE [None]
